FAERS Safety Report 5239141-8 (Version None)
Quarter: 2007Q1

REPORT INFORMATION
  Report Type: 
  Country: None (occurrence: None)
  Receive Date: 20061208
  Receipt Date: 20050513
  Transmission Date: 20070707
  Serious: Yes (Other)
  Sender: FDA-Public Use
  Company Number: 2005UW07469

PATIENT
  Age: 65 Year
  Sex: Male
  Weight: 95.2 kg

DRUGS (2)
  1. CRESTOR [Suspect]
     Indication: BLOOD CHOLESTEROL INCREASED
     Dates: start: 20041201
  2. ALLERGY SHOTS [Concomitant]

REACTIONS (4)
  - ASTHENIA [None]
  - BRONCHITIS [None]
  - LIBIDO DECREASED [None]
  - MYALGIA [None]
